FAERS Safety Report 9571111 (Version 2)
Quarter: 2013Q4

REPORT INFORMATION
  Report Type: Report from Study
  Country: IE (occurrence: IE)
  Receive Date: 20131001
  Receipt Date: 20131011
  Transmission Date: 20140711
  Serious: Yes (Hospitalization)
  Sender: FDA-Public Use
  Company Number: PHHY2013IE106531

PATIENT
  Sex: Female

DRUGS (8)
  1. GILENYA [Suspect]
     Indication: RELAPSING-REMITTING MULTIPLE SCLEROSIS
     Dosage: 0.5 MG, QD
     Route: 048
     Dates: start: 20121001
  2. AMITRIPTYLINE PAMOATE [Concomitant]
     Dosage: 2 MG, UNK
  3. CALCICHEW D3 FORTE [Concomitant]
     Dosage: 1 DF, QD
     Route: 048
  4. NEXIUM//ESOMEPRAZOLE MAGNESIUM [Concomitant]
     Dosage: 40 MG, QD
     Route: 048
  5. OXYBUTYNIN [Concomitant]
     Dosage: 5 MG, QD
     Route: 048
  6. BACLOFEN [Concomitant]
     Dosage: 30 MG, TID
     Route: 048
  7. VESITIRIM [Concomitant]
     Dosage: 10 MG, QD
     Route: 048
  8. NAUDICELLE [Concomitant]
     Dosage: 1 DF, QD
     Route: 048

REACTIONS (2)
  - Multiple sclerosis relapse [Unknown]
  - Central nervous system lesion [Unknown]
